FAERS Safety Report 19973027 (Version 1)
Quarter: 2021Q4

REPORT INFORMATION
  Report Type: Spontaneous
  Country: US (occurrence: US)
  Receive Date: 20211020
  Receipt Date: 20211020
  Transmission Date: 20220304
  Serious: No
  Sender: FDA-Public Use
  Company Number: US-NOVARTISTESTPH-NVSC2021US235979

PATIENT
  Weight: 16 kg

DRUGS (1)
  1. KYMRIAH [Suspect]
     Active Substance: TISAGENLECLEUCEL
     Indication: Acute lymphocytic leukaemia
     Dosage: UNK, ONCE/SINGLE (1.3E6 CAR T CELLS)
     Route: 042
     Dates: start: 20210830

REACTIONS (3)
  - Blast cells present [Not Recovered/Not Resolved]
  - White blood cell count increased [Not Recovered/Not Resolved]
  - Remission not achieved [Not Recovered/Not Resolved]
